FAERS Safety Report 23852438 (Version 17)
Quarter: 2025Q3

REPORT INFORMATION
  Report Type: Report from Study
  Country: JP (occurrence: JP)
  Receive Date: 20240514
  Receipt Date: 20250819
  Transmission Date: 20251021
  Serious: Yes (Death, Hospitalization, Other)
  Sender: ROCHE
  Company Number: JP-CHUGAI-2024013724

PATIENT
  Age: 82 Year
  Sex: Female
  Weight: 41.1 kg

DRUGS (3)
  1. TECENTRIQ [Suspect]
     Active Substance: ATEZOLIZUMAB
     Indication: Triple negative breast cancer
     Route: 042
     Dates: start: 20240111, end: 20241220
  2. ABRAXANE [Suspect]
     Active Substance: PACLITAXEL
     Indication: Triple negative breast cancer
     Route: 042
     Dates: start: 20240111, end: 202501
  3. ABRAXANE [Suspect]
     Active Substance: PACLITAXEL
     Route: 042
     Dates: start: 20240315, end: 20241220

REACTIONS (9)
  - Hypoxia [Unknown]
  - Dyspnoea [Recovered/Resolved]
  - Neutropenia [Recovered/Resolved]
  - Pneumonitis [Recovered/Resolved]
  - Fatigue [Recovered/Resolved]
  - Pyrexia [Recovered/Resolved]
  - Malaise [Recovered/Resolved]
  - Hypoxia [Fatal]
  - Dyspnoea [Fatal]

NARRATIVE: CASE EVENT DATE: 20240119
